FAERS Safety Report 5853442-1 (Version None)
Quarter: 2008Q3

REPORT INFORMATION
  Report Type: 
  Country: None (occurrence: None)
  Receive Date: 20080820
  Receipt Date: 20080811
  Transmission Date: 20090109
  Serious: Yes (Other)
  Sender: FDA-Public Use
  Company Number: GXKR2008GB06761

PATIENT
  Age: 51 Year
  Sex: Male

DRUGS (4)
  1. ATENOLOL [Suspect]
     Indication: HYPERTENSION
  2. PROPRANOLOL [Suspect]
     Indication: MIGRAINE
     Dosage: UNKNOWN
  3. SILDENAFIL CITRATE [Suspect]
     Dosage: UNKNOWN
  4. HYDROCORTISONE [Concomitant]

REACTIONS (9)
  - DIPLOPIA [None]
  - DISTURBANCE IN ATTENTION [None]
  - HEADACHE [None]
  - HYPOPITUITARISM [None]
  - IIIRD NERVE PARALYSIS [None]
  - LETHARGY [None]
  - NAUSEA [None]
  - PITUITARY HAEMORRHAGE [None]
  - TUMOUR NECROSIS [None]
